FAERS Safety Report 6937053-2 (Version None)
Quarter: 2010Q3

REPORT INFORMATION
  Report Type: 
  Country: None (occurrence: None)
  Receive Date: 20100823
  Receipt Date: 20100810
  Transmission Date: 20110219
  Serious: Yes (Disabling)
  Sender: FDA-Public Use
  Company Number: PHHY2010FI26603

PATIENT
  Sex: Female

DRUGS (4)
  1. ZOMETA [Suspect]
     Indication: MULTIPLE MYELOMA
     Dosage: 4 MG, PER MONTH
     Dates: start: 19980101, end: 20091009
  2. REVLIMID [Concomitant]
     Indication: MULTIPLE MYELOMA
     Dosage: 10 MG, PER DAY
     Route: 048
     Dates: start: 20090610
  3. CALCICHEW D3 [Concomitant]
     Dosage: 1 TABLET 2 TIMES A DAY
     Route: 048
  4. DEXAMETASON [Concomitant]
     Dosage: 20 MG PER WEEK

REACTIONS (6)
  - BONE DISORDER [None]
  - BONE LESION [None]
  - GINGIVAL ERYTHEMA [None]
  - GINGIVAL SWELLING [None]
  - LOOSE TOOTH [None]
  - OSTEONECROSIS OF JAW [None]
